FAERS Safety Report 17087108 (Version 1)
Quarter: 2019Q4

REPORT INFORMATION
  Report Type: Spontaneous
  Country: FR (occurrence: FR)
  Receive Date: 20191128
  Receipt Date: 20191128
  Transmission Date: 20200122
  Serious: Yes (Hospitalization)
  Sender: FDA-Public Use
  Company Number: FR-TEVA-2019-FR-1141530

PATIENT
  Age: 77 Year
  Sex: Female
  Weight: 58.3 kg

DRUGS (1)
  1. FURADANTINE [Suspect]
     Active Substance: NITROFURANTOIN
     Indication: CYSTITIS
     Dosage: 50 MG X 4 / DAY
     Route: 048
     Dates: start: 2007, end: 20090625

REACTIONS (1)
  - Tenderness [Not Recovered/Not Resolved]

NARRATIVE: CASE EVENT DATE: 20090622
